FAERS Safety Report 16754385 (Version 17)
Quarter: 2021Q2

REPORT INFORMATION
  Report Type: Spontaneous
  Country: US (occurrence: US)
  Receive Date: 20190829
  Receipt Date: 20210408
  Transmission Date: 20210716
  Serious: Yes (Other)
  Sender: FDA-Public Use
  Company Number: US-PFIZER INC-2019370581

PATIENT
  Age: 79 Year
  Sex: Female
  Weight: 81 kg

DRUGS (4)
  1. FASLODEX [Concomitant]
     Active Substance: FULVESTRANT
     Dosage: UNK, MONTHLY
     Dates: start: 20190719
  2. LEVAQUIN [Concomitant]
     Active Substance: LEVOFLOXACIN
     Dosage: UNK
  3. IBRANCE [Suspect]
     Active Substance: PALBOCICLIB
     Indication: BREAST CANCER METASTATIC
     Dosage: 100 MG, 1X/DAY
     Dates: start: 20190530
  4. IBRANCE [Suspect]
     Active Substance: PALBOCICLIB
     Dosage: 125 MG

REACTIONS (21)
  - Illness [Unknown]
  - Second primary malignancy [Unknown]
  - Neoplasm progression [Not Recovered/Not Resolved]
  - Hypertension [Unknown]
  - Tremor [Unknown]
  - Muscle spasms [Unknown]
  - Basal cell carcinoma [Unknown]
  - White blood cell count decreased [Unknown]
  - Emotional disorder [Unknown]
  - Muscular weakness [Unknown]
  - Mass [Unknown]
  - Vein rupture [Unknown]
  - Gastroenteritis viral [Unknown]
  - Feeling cold [Unknown]
  - Feeling abnormal [Unknown]
  - Asthenia [Unknown]
  - Fatigue [Recovering/Resolving]
  - Tooth loss [Unknown]
  - Diabetes mellitus [Unknown]
  - Renal disorder [Unknown]
  - Pruritus [Unknown]

NARRATIVE: CASE EVENT DATE: 20190819
